FAERS Safety Report 5146129-4 (Version None)
Quarter: 2006Q4

REPORT INFORMATION
  Report Type: 
  Country: None (occurrence: None)
  Receive Date: 20061108
  Receipt Date: 20061027
  Transmission Date: 20070319
  Serious: Yes (Death, Hospitalization)
  Sender: FDA-Public Use
  Company Number: IN-MERCK-0610USA14907

PATIENT
  Age: 67 Year
  Sex: Male
  Weight: 70 kg

DRUGS (3)
  1. PRIMAXIN [Suspect]
     Indication: SEPSIS
     Route: 042
  2. TEICOPLANIN [Concomitant]
     Route: 042
  3. FLUCONAZOLE [Concomitant]
     Route: 042

REACTIONS (3)
  - CONVULSION [None]
  - MULTI-ORGAN FAILURE [None]
  - SEPSIS [None]
